FAERS Safety Report 9746405 (Version 1)
Quarter: 2013Q4

REPORT INFORMATION
  Report Type: Spontaneous
  Country: US (occurrence: None)
  Receive Date: 20131209
  Receipt Date: 20131209
  Transmission Date: 20140711
  Serious: Yes (Hospitalization)
  Sender: FDA-Public Use
  Company Number: None

PATIENT
  Age: 14 Year
  Sex: Female
  Weight: 63.5 kg

DRUGS (1)
  1. SEROQUEL [Suspect]
     Indication: DEPRESSION
     Dosage: 3 PILLS THREE TIMES, TAKEN BY MOUTH
     Route: 048
     Dates: start: 20131104, end: 20131205

REACTIONS (7)
  - Suicidal ideation [None]
  - Condition aggravated [None]
  - Intentional self-injury [None]
  - Mania [None]
  - Hallucination [None]
  - Aggression [None]
  - Nightmare [None]
